FAERS Safety Report 6288562-3 (Version None)
Quarter: 2009Q3

REPORT INFORMATION
  Report Type: 
  Country: None (occurrence: None)
  Receive Date: 20090729
  Receipt Date: 20090720
  Transmission Date: 20100115
  Serious: Yes (Hospitalization)
  Sender: FDA-Public Use
  Company Number: DE-ELI_LILLY_AND_COMPANY-DE200906006203

PATIENT
  Age: 59 Year
  Sex: Male
  Weight: 93.3 kg

DRUGS (5)
  1. BYETTA [Suspect]
     Indication: TYPE 2 DIABETES MELLITUS
     Dosage: 5 UG, UNK
     Route: 058
     Dates: start: 20090615, end: 20090621
  2. METFORMIN [Concomitant]
  3. GLIMEPIRIDE [Concomitant]
  4. RAMIPRIL [Concomitant]
  5. CLONT                              /00012501/ [Concomitant]

REACTIONS (1)
  - PANCREATITIS ACUTE [None]
